FAERS Safety Report 23500095 (Version 1)
Quarter: 2024Q1

REPORT INFORMATION
  Report Type: Spontaneous
  Country: GB (occurrence: GB)
  Receive Date: 20240208
  Receipt Date: 20240208
  Transmission Date: 20240409
  Serious: No
  Sender: FDA-Public Use
  Company Number: None

PATIENT
  Age: 58 Year
  Sex: Male
  Weight: 114 kg

DRUGS (53)
  1. CEPHALEXIN [Suspect]
     Active Substance: CEPHALEXIN
     Indication: Infection
     Dosage: 1000 MILLIGRAM, QD CAPSULE
     Route: 065
     Dates: start: 20230313
  2. ACYCLOVIR [Concomitant]
     Active Substance: ACYCLOVIR
     Indication: Ill-defined disorder
     Dosage: UNK, BID (ONE TO BE TAKEN TWICE A DAY))
     Route: 065
     Dates: start: 20211105
  3. ALVERINE CITRATE [Concomitant]
     Active Substance: ALVERINE CITRATE
     Indication: Ill-defined disorder
     Dosage: UNK, TID (ONE TO BE TAKEN THREE TIMES A DAY)
     Route: 065
     Dates: start: 20211105
  4. AMOXICILLIN [Concomitant]
     Active Substance: AMOXICILLIN
     Indication: Ill-defined disorder
     Dosage: UNK, TID(TAKE ONE 3 TIMES/DAY )
     Route: 065
     Dates: start: 20210519
  5. Aqueous cream [Concomitant]
     Indication: Ill-defined disorder
     Dosage: UNK (USE INSTEAD OF SOAP)
     Route: 065
     Dates: start: 20190730
  6. ASPIRIN [Concomitant]
     Active Substance: ASPIRIN
     Indication: Ill-defined disorder
     Dosage: 3 DOSAGE FORM(TAKE 3 TABLETS STAT (ACUTE TO COMPLETE 300MG) )
     Route: 065
     Dates: start: 20211105
  7. ATORVASTATIN [Concomitant]
     Active Substance: ATORVASTATIN
     Indication: Ill-defined disorder
     Dosage: UNK, QD (TAKE ONE DAILY)
     Route: 065
     Dates: start: 20211105
  8. BENZYDAMINE HYDROCHLORIDE [Concomitant]
     Active Substance: BENZYDAMINE HYDROCHLORIDE
     Indication: Ill-defined disorder
     Dosage: UNK, PRN (10 -15 ML 1 DS AS NEEDED )
     Route: 065
     Dates: start: 20190730
  9. BISOPROLOL [Concomitant]
     Active Substance: BISOPROLOL\BISOPROLOL FUMARATE
     Indication: Ill-defined disorder
     Dosage: UNK, QD(TAKE ONE DAILY)
     Route: 065
     Dates: start: 20211105
  10. CHLORPROMAZINE [Concomitant]
     Active Substance: CHLORPROMAZINE
     Indication: Ill-defined disorder
     Dosage: UNK, HS(TWO TO BE TAKEN AT NIGHT)
     Route: 065
     Dates: start: 20190730
  11. POLYETHYLENE GLYCOL 3350\POTASSIUM CHLORIDE\SODIUM BICARBONATE\SODIUM [Concomitant]
     Active Substance: POLYETHYLENE GLYCOL 3350\POTASSIUM CHLORIDE\SODIUM BICARBONATE\SODIUM CHLORIDE
     Indication: Ill-defined disorder
     Dosage: UNK, PRN(TAKE ONE TO EIGHT SACHETS AS REQUIRED)
     Route: 065
     Dates: start: 20190730
  12. CYCLIZINE [Concomitant]
     Active Substance: CYCLIZINE
     Indication: Ill-defined disorder
     Dosage: UNK, PRN (ONE THREE TIMES A DAY AS REQUIRED )
     Route: 065
     Dates: start: 20190730
  13. CYCLIZINE [Concomitant]
     Active Substance: CYCLIZINE
     Indication: Nausea
  14. DIAZEPAM [Concomitant]
     Active Substance: DIAZEPAM
     Indication: Ill-defined disorder
     Dosage: UNK, TID (ONE TO BE TAKEN THREE TIMES A DAY))
     Route: 065
     Dates: start: 20211105
  15. DICLOFENAC DIETHYLAMINE [Concomitant]
     Active Substance: DICLOFENAC DIETHYLAMINE
     Indication: Ill-defined disorder
     Dosage: UNK, BID (APPLY TWICE DAILY)
     Route: 065
     Dates: start: 20200527
  16. DOCUSATE SODIUM [Concomitant]
     Active Substance: DOCUSATE SODIUM
     Indication: Ill-defined disorder
     Dosage: UNK, (TAKE THREE IN THE MORNING AND TWO AT NIGHT )
     Route: 065
     Dates: start: 20211105
  17. EZETIMIBE [Concomitant]
     Active Substance: EZETIMIBE
     Indication: Ill-defined disorder
     Dosage: UNK, QD(TAKE ONE IN THE MORNING)
     Route: 065
     Dates: start: 20211105
  18. FLUCLOXACILLIN [Concomitant]
     Active Substance: FLUCLOXACILLIN
     Indication: Ill-defined disorder
     Dosage: UNK UNK, QID(ONE TO BE TAKEN FOUR TIMES A DAY)
     Route: 065
     Dates: start: 20230309, end: 20230316
  19. FLUCONAZOLE [Concomitant]
     Active Substance: FLUCONAZOLE
     Indication: Ill-defined disorder
     Dosage: UNK, ONCE WEEKLY
     Route: 065
     Dates: start: 20190730
  20. FUROSEMIDE [Concomitant]
     Active Substance: FUROSEMIDE
     Indication: Ill-defined disorder
     Dosage: UNK, BID(TAKE ONE EACH MORNING AND ONE AT NOON)
     Route: 065
     Dates: start: 20211105
  21. GABAPENTIN [Concomitant]
     Active Substance: GABAPENTIN
     Indication: Ill-defined disorder
     Dosage: UNK, TID(TAKE ONE 3 TIMES/DAY)
     Route: 065
     Dates: start: 20210621
  22. POTASSIUM BICARBONATE\SODIUM ALGINATE [Concomitant]
     Active Substance: POTASSIUM BICARBONATE\SODIUM ALGINATE
     Indication: Ill-defined disorder
     Dosage: UNK UNK, QID(5ML OR 10ML 4 TIMES/DAY AS REQUIRED)
     Route: 065
     Dates: start: 20190730
  23. GLYCERIN [Concomitant]
     Active Substance: GLYCERIN
     Indication: Ill-defined disorder
     Dosage: UNK, PRN (INSERT ONE AS NEEDED)
     Route: 065
     Dates: start: 20190730
  24. NITROGLYCERIN [Concomitant]
     Active Substance: NITROGLYCERIN
     Indication: Ill-defined disorder
     Dosage: UNK (TALE 1 PUFF UNDER TONGUE FOR CHEST PAIN)
     Route: 060
     Dates: start: 20190730
  25. NITROGLYCERIN [Concomitant]
     Active Substance: NITROGLYCERIN
     Indication: Chest pain
  26. HYDROCORTISONE [Concomitant]
     Active Substance: HYDROCORTISONE
     Indication: Ill-defined disorder
     Dosage: UNK, BID(APPLY TWICE DAILY)
     Route: 065
     Dates: start: 20190730
  27. HYPROMELLOSES [Concomitant]
     Active Substance: HYPROMELLOSES
     Indication: Ill-defined disorder
     Dosage: 1 DROP, PRN (ONE DROP AS NEEDED)
     Route: 065
     Dates: start: 20220808
  28. LIDOCAINE [Concomitant]
     Active Substance: LIDOCAINE
     Indication: Ill-defined disorder
     Dosage: UNK(12 HOURS ON AND 12 HOURS OFF)
     Route: 065
     Dates: start: 20190730
  29. LINACLOTIDE [Concomitant]
     Active Substance: LINACLOTIDE
     Indication: Ill-defined disorder
     Dosage: UNK, OD (TAKE ONE ONCE DAILY AS REQUIRED)
     Route: 065
     Dates: start: 20190730
  30. LOPERAMIDE [Concomitant]
     Active Substance: LOPERAMIDE
     Indication: Ill-defined disorder
     Dosage: UNK, TID (ONE TO BE TAKEN THREE TIMES A DAY)
     Route: 065
     Dates: start: 20190730
  31. MONTELUKAST [Concomitant]
     Active Substance: MONTELUKAST SODIUM
     Indication: Ill-defined disorder
     Dosage: UNK, HS (TAKE ONE AT NIGHT)
     Route: 065
     Dates: start: 20220112
  32. NEBIDO [Concomitant]
     Active Substance: TESTOSTERONE UNDECANOATE
     Indication: Ill-defined disorder
     Dosage: UNK (USE AS DIRECTED )
     Route: 065
     Dates: start: 20190730
  33. NITRAZEPAM [Concomitant]
     Active Substance: NITRAZEPAM
     Indication: Ill-defined disorder
     Dosage: UNK, HS (TAKE ONE AT NIGHT)
     Route: 065
     Dates: start: 20211105
  34. NYSTATIN [Concomitant]
     Active Substance: NYSTATIN
     Indication: Ill-defined disorder
     Dosage: 1 MILLILITER, QID
     Route: 065
     Dates: start: 20230118, end: 20230125
  35. OMEPRAZOLE [Concomitant]
     Active Substance: OMEPRAZOLE
     Indication: Ill-defined disorder
     Dosage: UNK, BID (TAKE ONE TWICE DAILY)
     Route: 065
     Dates: start: 20220729
  36. MORPHINE SULFATE [Concomitant]
     Active Substance: MORPHINE SULFATE
     Indication: Ill-defined disorder
     Dosage: UNK, HS (TAKE 5-10ML (10-20MG) AT NIGHT)
     Route: 065
     Dates: start: 20190730
  37. MORPHINE SULFATE [Concomitant]
     Active Substance: MORPHINE SULFATE
     Indication: Pain
  38. PIOGLITAZONE [Concomitant]
     Active Substance: PIOGLITAZONE
     Indication: Ill-defined disorder
     Dosage: UNK, QD (TAKE ONE DAILY AS PER GASTROENTEROLOGY )
     Route: 065
     Dates: start: 20211105
  39. PREDNISOLONE [Concomitant]
     Active Substance: PREDNISOLONE
     Indication: Ill-defined disorder
     Dosage: 6 DOSAGE FORM, OD(TAKE SIX TABLETS ONCE A DAY FOR 5 DAYS )
     Route: 065
     Dates: start: 20210519
  40. RAMIPRIL [Concomitant]
     Active Substance: RAMIPRIL
     Indication: Ill-defined disorder
     Dosage: UNK,  (TAKE ONE DAILY)
     Route: 065
     Dates: start: 20211105
  41. RANOLAZINE [Concomitant]
     Active Substance: RANOLAZINE
     Indication: Ill-defined disorder
     Dosage: UNK, BID (TAKE ONE TWICE DAILY )
     Route: 065
     Dates: start: 20211105
  42. BUPRENORPHINE [Concomitant]
     Active Substance: BUPRENORPHINE
     Indication: Ill-defined disorder
     Dosage: UNK, ONCE WEEKLY (APPLY ONE WEEKLY )
     Route: 065
     Dates: start: 20190730
  43. DIBUCAINE HYDROCHLORIDE\PREDNISOLONE [Concomitant]
     Active Substance: DIBUCAINE HYDROCHLORIDE\PREDNISOLONE
     Indication: Ill-defined disorder
     Dosage: UNK, QD (INSERT ONE DAILY IN THE EVENING FOR 5-7 DAYS)
     Route: 065
     Dates: start: 20190730
  44. SERTRALINE [Concomitant]
     Active Substance: SERTRALINE HYDROCHLORIDE
     Indication: Ill-defined disorder
     Dosage: 2 DOSAGE FORM, OD (TAKE TWO TABLETS ONCE A DAY )
     Route: 065
     Dates: start: 20211105
  45. METFORMIN HYDROCHLORIDE [Concomitant]
     Active Substance: METFORMIN HYDROCHLORIDE
     Indication: Ill-defined disorder
     Dosage: UNK, BID (TAKE ONE TWICE DAILY)
     Route: 065
     Dates: start: 20211105
  46. SYMBICORT [Concomitant]
     Active Substance: BUDESONIDE\FORMOTEROL FUMARATE DIHYDRATE
     Indication: Ill-defined disorder
     Dosage: UNK, BID (1 OR 2 DOSES TWICE DLY )
     Route: 065
     Dates: start: 20190730
  47. TADALAFIL [Concomitant]
     Active Substance: TADALAFIL
     Indication: Ill-defined disorder
     Dosage: UNK(1 TABLET 1 HOUR BEFORE INTERCOURSE)
     Route: 065
     Dates: start: 20190730
  48. TAMSULOSIN HYDROCHLORIDE [Concomitant]
     Active Substance: TAMSULOSIN HYDROCHLORIDE
     Indication: Ill-defined disorder
     Dosage: UNK, QD (TAKE ONE DAILY)
     Route: 065
     Dates: start: 20211105
  49. TERBUTALINE [Concomitant]
     Active Substance: TERBUTALINE
     Indication: Ill-defined disorder
     Dosage: UNK, PRN (1 -2 DOSES AS NEEDED )
     Route: 065
     Dates: start: 20190730
  50. TRAMADOL [Concomitant]
     Active Substance: TRAMADOL\TRAMADOL HYDROCHLORIDE
     Indication: Ill-defined disorder
     Dosage: UNK, QD (TAKE ONE IN THE MORNING)
     Route: 065
     Dates: start: 20210621
  51. TRIMETHOPRIM [Concomitant]
     Active Substance: TRIMETHOPRIM
     Indication: Ill-defined disorder
     Dosage: UNK, BID (TAKE ONE TWICE DAILY)
     Route: 065
     Dates: start: 20230113, end: 20230127
  52. TRULICITY [Concomitant]
     Active Substance: DULAGLUTIDE
     Indication: Ill-defined disorder
     Dosage: 1.5 MILLIGRAM, ONCE WEEKLY
     Route: 065
     Dates: start: 20210309
  53. VARDENAFIL [Concomitant]
     Active Substance: VARDENAFIL HYDROCHLORIDE
     Indication: Ill-defined disorder
     Dosage: UNK (USE BEFORE INTERCOURSE)
     Route: 065
     Dates: start: 20220411

REACTIONS (1)
  - Malaise [Recovered/Resolved]
